FAERS Safety Report 5214292-2 (Version None)
Quarter: 2007Q1

REPORT INFORMATION
  Report Type: 
  Country: None (occurrence: None)
  Receive Date: 20070116
  Receipt Date: 20061221
  Transmission Date: 20070707
  Serious: Yes (Death)
  Sender: FDA-Public Use
  Company Number: US019154

PATIENT
  Age: 20 Year
  Sex: Male

DRUGS (1)
  1. FENTANYL [Suspect]
     Dates: start: 20061201, end: 20061201

REACTIONS (3)
  - DRUG ABUSER [None]
  - DRUG TOXICITY [None]
  - MULTIPLE DRUG OVERDOSE [None]
